FAERS Safety Report 14360265 (Version 3)
Quarter: 2018Q3

REPORT INFORMATION
  Report Type: Spontaneous
  Country: GB (occurrence: GB)
  Receive Date: 20180106
  Receipt Date: 20180703
  Transmission Date: 20181010
  Serious: Yes (Other)
  Sender: FDA-Public Use
  Company Number: GB-ROCHE-2050929

PATIENT
  Sex: Female
  Weight: 95 kg

DRUGS (7)
  1. RUPATADINE [Concomitant]
     Active Substance: RUPATADINE
     Indication: CHRONIC SPONTANEOUS URTICARIA
     Dosage: 10 OT, BID
     Route: 048
  2. MONTELUKAST [Concomitant]
     Active Substance: MONTELUKAST SODIUM
     Indication: CHRONIC SPONTANEOUS URTICARIA
     Dosage: 10 OT, QHS
     Route: 048
  3. RANITIDINE. [Concomitant]
     Active Substance: RANITIDINE
     Indication: CHRONIC SPONTANEOUS URTICARIA
     Dosage: 150 OT, BID
     Route: 048
  4. XOLAIR [Suspect]
     Active Substance: OMALIZUMAB
     Indication: CHRONIC SPONTANEOUS URTICARIA
  5. FOSTAIR [Concomitant]
     Active Substance: BECLOMETHASONE\FORMOTEROL
     Indication: CHRONIC SPONTANEOUS URTICARIA
     Route: 055
  6. FEXOFENADINE [Concomitant]
     Active Substance: FEXOFENADINE\FEXOFENADINE HYDROCHLORIDE
     Indication: CHRONIC SPONTANEOUS URTICARIA
     Dosage: 60 OT
     Route: 048
  7. XOLAIR [Suspect]
     Active Substance: OMALIZUMAB
     Indication: ASTHMA
     Dosage: 300 OT,
     Route: 058
     Dates: start: 2017

REACTIONS (12)
  - Flushing [Recovered/Resolved]
  - Nasopharyngitis [Unknown]
  - Respiratory distress [Recovered/Resolved]
  - Influenza like illness [Unknown]
  - Anaphylactic reaction [Recovered/Resolved]
  - Wheezing [Unknown]
  - Asthma [Recovered/Resolved]
  - Cough [Unknown]
  - Dyspnoea [Unknown]
  - Erythema [Recovered/Resolved]
  - Sneezing [Unknown]
  - Malaise [Unknown]
